FAERS Safety Report 9819862 (Version 1)
Quarter: 2014Q1

REPORT INFORMATION
  Report Type: Spontaneous
  Country: US (occurrence: None)
  Receive Date: 20140114
  Receipt Date: 20140114
  Transmission Date: 20141002
  Serious: No
  Sender: FDA-Public Use
  Company Number: None

PATIENT
  Age: 48 Year
  Sex: Female

DRUGS (1)
  1. TECFIDERA [Suspect]
     Route: 048
     Dates: start: 20131018, end: 20140109

REACTIONS (7)
  - Flushing [None]
  - Myalgia [None]
  - Malaise [None]
  - Urinary tract infection [None]
  - White blood cell count increased [None]
  - Hypoaesthesia [None]
  - Protein urine present [None]
